FAERS Safety Report 19641334 (Version 5)
Quarter: 2022Q3

REPORT INFORMATION
  Report Type: Report from Study
  Country: CH (occurrence: CH)
  Receive Date: 20210729
  Receipt Date: 20220928
  Transmission Date: 20221026
  Serious: Yes (Hospitalization)
  Sender: FDA-Public Use
  Company Number: CH-ABBVIE-21K-151-3830218-00

PATIENT
  Sex: Male

DRUGS (6)
  1. CARBIDOPA\LEVODOPA [Suspect]
     Active Substance: CARBIDOPA\LEVODOPA
     Indication: Parkinson^s disease
     Dosage: MD: 3 ML, CRD: 4.4ML/H, CRN: 3.0 ML/H, ED: 1 ML?24 H THERAPY
     Route: 050
     Dates: end: 20210317
  2. CARBIDOPA\LEVODOPA [Suspect]
     Active Substance: CARBIDOPA\LEVODOPA
     Dosage: MD: 3 ML, CRD: 4.5 ML/H, CRN: 2.8 ML/H, ED: 2 ML/1 CASSETTE PER HOUR ?24 H THERAPY
     Route: 050
     Dates: start: 20210317, end: 2021
  3. CARBIDOPA\LEVODOPA [Suspect]
     Active Substance: CARBIDOPA\LEVODOPA
     Dosage: MD: 3.0 ML, CRD: 3.3 ML/H, CRN: 2.0 ML/H, ED: 2.0 ML?24H THERAPY
     Route: 050
     Dates: start: 20210725, end: 20220223
  4. CARBIDOPA\LEVODOPA [Suspect]
     Active Substance: CARBIDOPA\LEVODOPA
     Dosage: MD: 3.0 ML, CRD: 3.7 ML/H, CRN: 2.0 ML/H, ED: 2.0 ML?24H THERAPY
     Route: 050
     Dates: start: 20220223
  5. Opicapon (Ongentys) [Concomitant]
     Indication: Product used for unknown indication
     Dosage: 50 MILLIGRAM
     Dates: start: 202107
  6. ONGENTYS [Concomitant]
     Active Substance: OPICAPONE
     Indication: Product used for unknown indication
     Dates: start: 202107

REACTIONS (12)
  - Arthritis infective [Unknown]
  - Rehabilitation therapy [Unknown]
  - Device alarm issue [Recovered/Resolved]
  - Gait disturbance [Unknown]
  - Akinesia [Recovering/Resolving]
  - Therapeutic product effect incomplete [Unknown]
  - Dyskinesia [Recovering/Resolving]
  - Therapeutic product effect incomplete [Unknown]
  - Arthritis [Unknown]
  - Post procedural complication [Unknown]
  - Device occlusion [Unknown]
  - Device issue [Unknown]

NARRATIVE: CASE EVENT DATE: 20210101
